FAERS Safety Report 8298852-0 (Version None)
Quarter: 2012Q2

REPORT INFORMATION
  Report Type: 
  Country: None (occurrence: None)
  Receive Date: 20120419
  Receipt Date: 20120404
  Transmission Date: 20120825
  Serious: Yes (Hospitalization, Other)
  Sender: FDA-Public Use
  Company Number: GB-ARROW GEN-2012-06026

PATIENT
  Age: 65 Year
  Sex: Male

DRUGS (2)
  1. OMEPRAZOLE [Suspect]
     Indication: PRODUCT USED FOR UNKNOWN INDICATION
     Dosage: 40 MG, BID
     Route: 042
  2. OMEPRAZOLE [Suspect]
     Dosage: 40 MG, DAILY
     Route: 042

REACTIONS (1)
  - ENTEROCOCCAL INFECTION [None]
